FAERS Safety Report 7425844-3 (Version None)
Quarter: 2011Q2

REPORT INFORMATION
  Report Type: 
  Country: None (occurrence: None)
  Receive Date: 20110420
  Receipt Date: 20110418
  Transmission Date: 20111010
  Serious: Yes (Hospitalization, Other)
  Sender: FDA-Public Use
  Company Number: US-ROCHE-552292

PATIENT
  Sex: Male
  Weight: 95.3 kg

DRUGS (4)
  1. ZYPREXA [Suspect]
     Indication: ANTIDEPRESSANT THERAPY
     Route: 065
  2. ACCUTANE [Suspect]
     Indication: ACNE
     Route: 065
     Dates: start: 19990122, end: 19991222
  3. WELLBUTRIN [Suspect]
     Indication: ANTIDEPRESSANT THERAPY
     Route: 065
  4. ERYTHROMYCIN [Concomitant]
     Indication: ACNE
     Route: 065

REACTIONS (23)
  - SUICIDE ATTEMPT [None]
  - HEADACHE [None]
  - IRITIS [None]
  - CROHN'S DISEASE [None]
  - DEPRESSION [None]
  - ARTHRALGIA [None]
  - MANIA [None]
  - WEIGHT DECREASED [None]
  - BIPOLAR DISORDER [None]
  - PYREXIA [None]
  - GASTROOESOPHAGEAL REFLUX DISEASE [None]
  - POST CONCUSSION SYNDROME [None]
  - OVERDOSE [None]
  - MYALGIA [None]
  - IRRITABLE BOWEL SYNDROME [None]
  - SINUSITIS [None]
  - LOSS OF CONSCIOUSNESS [None]
  - ANTICHOLINERGIC SYNDROME [None]
  - BRONCHITIS [None]
  - SUICIDAL IDEATION [None]
  - INFLAMMATORY BOWEL DISEASE [None]
  - UVEITIS [None]
  - DECREASED APPETITE [None]
